FAERS Safety Report 18878263 (Version 6)
Quarter: 2021Q2

REPORT INFORMATION
  Report Type: Report from Study
  Country: None (occurrence: US)
  Receive Date: 20210211
  Receipt Date: 20210525
  Transmission Date: 20210717
  Serious: Yes (Hospitalization, Disabling, Other)
  Sender: FDA-Public Use
  Company Number: US-ABBVIE-21K-163-3767849-00

PATIENT
  Age: 73 Year
  Sex: Male
  Weight: 62.2 kg

DRUGS (17)
  1. CITALOPRAM [Suspect]
     Active Substance: CITALOPRAM HYDROBROMIDE
     Indication: NERVOUS SYSTEM DISORDER
     Route: 048
     Dates: start: 2021
  2. SINEMET [Concomitant]
     Active Substance: CARBIDOPA\LEVODOPA
     Indication: PRODUCT USED FOR UNKNOWN INDICATION
     Dosage: SINEMET ER.?25?100 MG.
     Route: 048
  3. DAPSONE. [Concomitant]
     Active Substance: DAPSONE
     Indication: COELIAC DISEASE
     Route: 048
  4. DUOPA [Suspect]
     Active Substance: CARBIDOPA\LEVODOPA
     Route: 050
  5. MELATONIN [Concomitant]
     Active Substance: MELATONIN
     Indication: PRODUCT USED FOR UNKNOWN INDICATION
  6. COVID?19 VACCINE NOS. [Concomitant]
     Active Substance: COVID-19 VACCINE NOS
     Dosage: MODERNA
     Route: 030
  7. DUOPA [Suspect]
     Active Substance: CARBIDOPA\LEVODOPA
     Indication: PARKINSON^S DISEASE
     Route: 050
     Dates: start: 20191203, end: 20210126
  8. TYLENOL [Concomitant]
     Active Substance: ACETAMINOPHEN
     Indication: PAIN
     Dosage: TYNELOL PM
     Route: 048
  9. LIDODERM [Concomitant]
     Active Substance: LIDOCAINE
     Indication: BACK PAIN
     Dosage: LIDODERM PATCH.?1 PATCH.
     Route: 062
  10. KRILL OIL [Concomitant]
     Active Substance: DIETARY SUPPLEMENT\KRILL OIL
     Indication: SUPPLEMENTATION THERAPY
  11. NORCO [Concomitant]
     Active Substance: ACETAMINOPHEN\HYDROCODONE BITARTRATE
     Indication: PRODUCT USED FOR UNKNOWN INDICATION
  12. VITAMIN D3 [Concomitant]
     Active Substance: CHOLECALCIFEROL
     Indication: SUPPLEMENTATION THERAPY
     Dosage: LIDODERM PATCH.?1 PATCH.
     Route: 062
  13. IRON [Concomitant]
     Active Substance: IRON
     Indication: SUPPLEMENTATION THERAPY
  14. CITALOPRAM [Suspect]
     Active Substance: CITALOPRAM HYDROBROMIDE
     Indication: AFFECTIVE DISORDER
  15. COVID?19 VACCINE NOS. [Concomitant]
     Active Substance: COVID-19 VACCINE NOS
     Indication: COVID-19 IMMUNISATION
     Dosage: MODERNA
     Route: 030
  16. TRAMADOL. [Concomitant]
     Active Substance: TRAMADOL
     Indication: PRODUCT USED FOR UNKNOWN INDICATION
     Route: 048
  17. RYTARY [Suspect]
     Active Substance: CARBIDOPA\LEVODOPA
     Indication: PARKINSON^S DISEASE
     Dosage: 48.75?195 MG
     Route: 048
     Dates: start: 20210126

REACTIONS (27)
  - Malaise [Unknown]
  - Confusional state [Unknown]
  - Parkinson^s disease [Not Recovered/Not Resolved]
  - Diarrhoea [Not Recovered/Not Resolved]
  - Dysphagia [Not Recovered/Not Resolved]
  - Fall [Recovered/Resolved with Sequelae]
  - Intentional medical device removal by patient [Unknown]
  - Stoma site erythema [Not Recovered/Not Resolved]
  - Hip fracture [Recovering/Resolving]
  - Fatigue [Not Recovered/Not Resolved]
  - Gait inability [Not Recovered/Not Resolved]
  - Incontinence [Not Recovered/Not Resolved]
  - Dysstasia [Not Recovered/Not Resolved]
  - Catheter site pain [Not Recovered/Not Resolved]
  - Confusional state [Recovered/Resolved]
  - Rash vesicular [Unknown]
  - Catheter site related reaction [Not Recovered/Not Resolved]
  - Hip fracture [Recovering/Resolving]
  - Medication error [Unknown]
  - Wrong technique in product usage process [Unknown]
  - Urinary tract infection [Recovered/Resolved]
  - Pneumonia [Recovered/Resolved]
  - Pelvic fracture [Recovering/Resolving]
  - Hallucination [Not Recovered/Not Resolved]
  - Dyskinesia [Not Recovered/Not Resolved]
  - Fall [Recovered/Resolved]
  - Asthenia [Not Recovered/Not Resolved]

NARRATIVE: CASE EVENT DATE: 2021
